FAERS Safety Report 7260984-3 (Version None)
Quarter: 2011Q1

REPORT INFORMATION
  Report Type: 
  Country: None (occurrence: None)
  Receive Date: 20110130
  Receipt Date: 20101122
  Transmission Date: 20110831
  Serious: Yes (Hospitalization)
  Sender: FDA-Public Use
  Company Number: US-ABBOTT-10P-163-0685238-00

PATIENT
  Sex: Female
  Weight: 43.13 kg

DRUGS (1)
  1. HUMIRA [Suspect]
     Indication: COLITIS ULCERATIVE
     Route: 058
     Dates: start: 20090101

REACTIONS (4)
  - CLOSTRIDIAL INFECTION [None]
  - NAUSEA [None]
  - VOMITING [None]
  - DIARRHOEA [None]
